FAERS Safety Report 10065917 (Version 2)
Quarter: 2014Q2

REPORT INFORMATION
  Report Type: Spontaneous
  Country: JP (occurrence: JP)
  Receive Date: 20140408
  Receipt Date: 20140408
  Transmission Date: 20141212
  Serious: Yes (Other)
  Sender: FDA-Public Use
  Company Number: PHHY2014JP039956

PATIENT
  Sex: Female

DRUGS (4)
  1. RIFAMPICIN SANDOZ [Suspect]
     Dosage: 3 DF, UNK
     Route: 048
     Dates: start: 20140324
  2. CLARITHROMYCIN [Suspect]
  3. CLARITH [Concomitant]
     Dosage: 400 MG, UNK
     Route: 048
     Dates: start: 20140324
  4. ESANBUTOL [Concomitant]
     Dosage: 750 MG, UNK
     Route: 048
     Dates: start: 20140324

REACTIONS (3)
  - Condition aggravated [Unknown]
  - Choking sensation [Recovering/Resolving]
  - Chest pain [Recovering/Resolving]
